FAERS Safety Report 6513950-7 (Version None)
Quarter: 2009Q4

REPORT INFORMATION
  Report Type: 
  Country: None (occurrence: None)
  Receive Date: 20091223
  Receipt Date: 20091214
  Transmission Date: 20100525
  Serious: Yes (Other)
  Sender: FDA-Public Use
  Company Number: GB-RANBAXY-2009RR-25523

PATIENT
  Age: 45 Year
  Sex: Female

DRUGS (3)
  1. FLUCONAZOLE [Suspect]
     Indication: VULVOVAGINAL CANDIDIASIS
     Dosage: 200 MG, QD
     Route: 048
  2. FLUCYTOSINE [Suspect]
     Indication: VULVOVAGINAL CANDIDIASIS
     Dosage: 1 G, QD
     Route: 061
  3. AMPHOTERICIN B [Suspect]
     Indication: VULVOVAGINAL CANDIDIASIS
     Dosage: 100 MG, QD
     Route: 061

REACTIONS (2)
  - DRUG INEFFECTIVE FOR UNAPPROVED INDICATION [None]
  - MULTIPLE-DRUG RESISTANCE [None]
